FAERS Safety Report 15495232 (Version 1)
Quarter: 2018Q4

REPORT INFORMATION
  Report Type: Spontaneous
  Country: US (occurrence: US)
  Receive Date: 20181012
  Receipt Date: 20181012
  Transmission Date: 20190205
  Serious: No
  Sender: FDA-Public Use
  Company Number: None

PATIENT
  Age: 60 Year
  Sex: Female
  Weight: 69.75 kg

DRUGS (1)
  1. SUMATRIPTAN SUCC 100MG TABLET [Suspect]
     Active Substance: SUMATRIPTAN SUCCINATE
     Indication: MIGRAINE
     Dosage: ?          QUANTITY:1 TABLET(S);?
     Route: 048
     Dates: start: 20180828, end: 20181012

REACTIONS (7)
  - Medication overuse headache [None]
  - Drug dependence [None]
  - Product substitution issue [None]
  - Feeling abnormal [None]
  - Back pain [None]
  - Neck pain [None]
  - Drug ineffective [None]

NARRATIVE: CASE EVENT DATE: 20181012
